FAERS Safety Report 7770006-3 (Version None)
Quarter: 2011Q3

REPORT INFORMATION
  Report Type: 
  Country: None (occurrence: None)
  Receive Date: 20110922
  Receipt Date: 20100915
  Transmission Date: 20111222
  Serious: Yes (Other)
  Sender: FDA-Public Use
  Company Number: US-ASTRAZENECA-2007UW12893

PATIENT
  Age: 23 Year
  Sex: Male
  Weight: 79.4 kg

DRUGS (19)
  1. SEROQUEL [Suspect]
     Dosage: 25 MG TO 500MG
     Route: 048
     Dates: start: 20040930
  2. RISPERDAL [Concomitant]
     Dates: start: 20060101
  3. XANAX [Concomitant]
     Route: 048
     Dates: start: 20020101
  4. SEROQUEL [Suspect]
     Dosage: 25 - 1200 MG (FLUCTUATING)
     Route: 048
     Dates: start: 20041005, end: 20060503
  5. TRAZODONE HYDROCHLORIDE [Concomitant]
     Indication: SLEEP DISORDER
     Route: 048
     Dates: start: 20050526
  6. LEXAPRO [Concomitant]
     Indication: DEPRESSION
     Dosage: 10 - 20 MG
     Route: 048
     Dates: start: 20030408
  7. SEROQUEL [Suspect]
     Dosage: 25 - 1200 MG (FLUCTUATING)
     Route: 048
     Dates: start: 20041005, end: 20060503
  8. GEODON [Concomitant]
     Route: 048
     Dates: start: 20060628
  9. SEROQUEL [Suspect]
     Indication: AFFECTIVE DISORDER
     Dosage: 200 MG - 600 MG
     Route: 048
     Dates: start: 20020401, end: 20060701
  10. ZYPREXA [Concomitant]
     Route: 048
     Dates: start: 20030408
  11. DEPAKOTE [Concomitant]
     Indication: BIPOLAR DISORDER
     Route: 048
     Dates: start: 20030408
  12. THORAZINE [Concomitant]
     Indication: ANXIETY
     Route: 048
     Dates: start: 20020101
  13. THORAZINE [Concomitant]
     Route: 048
     Dates: start: 20030408
  14. SEROQUEL [Suspect]
     Dosage: 25 MG TO 500MG
     Route: 048
     Dates: start: 20040930
  15. RISPERDAL [Concomitant]
     Dates: start: 20070101, end: 20070401
  16. XANAX [Concomitant]
     Route: 048
     Dates: start: 20030408
  17. LORAZEPAM [Concomitant]
     Dates: start: 20050101
  18. SEROQUEL [Suspect]
     Indication: BIPOLAR DISORDER
     Dosage: 200 MG - 600 MG
     Route: 048
     Dates: start: 20020401, end: 20060701
  19. RESTORIL [Concomitant]
     Dates: start: 20020101

REACTIONS (7)
  - DIABETES MELLITUS [None]
  - HYPERGLYCAEMIA [None]
  - DIABETIC KETOACIDOSIS [None]
  - BLOOD GLUCOSE INCREASED [None]
  - HYPOGLYCAEMIA [None]
  - BACK INJURY [None]
  - TYPE 1 DIABETES MELLITUS [None]
